FAERS Safety Report 20854648 (Version 3)
Quarter: 2022Q2

REPORT INFORMATION
  Report Type: Spontaneous
  Country: US (occurrence: US)
  Receive Date: 20220520
  Receipt Date: 20220520
  Transmission Date: 20220721
  Serious: Yes (Other)
  Sender: FDA-Public Use
  Company Number: US-KASDIRECT-2022-US-011895

PATIENT
  Sex: 0

DRUGS (1)
  1. SPF 50 PLUS SUNSCREEN [Suspect]
     Active Substance: OCTISALATE\TITANIUM DIOXIDE\ZINC OXIDE
     Indication: Prophylaxis
     Route: 065

REACTIONS (1)
  - Petit mal epilepsy [Unknown]

NARRATIVE: CASE EVENT DATE: 20190101
